FAERS Safety Report 24256570 (Version 1)
Quarter: 2024Q3

REPORT INFORMATION
  Report Type: Spontaneous
  Country: US (occurrence: US)
  Receive Date: 20240828
  Receipt Date: 20240828
  Transmission Date: 20241017
  Serious: Yes (Death, Other)
  Sender: AMGEN
  Company Number: US-AMGEN-USASP2024167042

PATIENT
  Age: 8 Year
  Sex: Female

DRUGS (4)
  1. BEVACIZUMAB [Suspect]
     Active Substance: BEVACIZUMAB
     Indication: Medulloblastoma
     Dosage: UNK
     Route: 065
  2. CISPLATIN [Concomitant]
     Active Substance: CISPLATIN
     Indication: Medulloblastoma
     Dosage: UNK
     Route: 065
  3. LOMUSTINE [Concomitant]
     Active Substance: LOMUSTINE
     Indication: Medulloblastoma
     Dosage: UNK
     Route: 065
  4. VINCRISTINE [Concomitant]
     Active Substance: VINCRISTINE
     Indication: Medulloblastoma
     Dosage: UNK
     Route: 065

REACTIONS (5)
  - Respiratory failure [Fatal]
  - Medulloblastoma [Unknown]
  - Radiation necrosis [Unknown]
  - Drug effective for unapproved indication [Unknown]
  - Off label use [Unknown]
